FAERS Safety Report 4915993-3 (Version None)
Quarter: 2006Q1

REPORT INFORMATION
  Report Type: 
  Country: None (occurrence: None)
  Receive Date: 20060214
  Receipt Date: 20060127
  Transmission Date: 20060701
  Serious: Yes (Hospitalization, Other)
  Sender: FDA-Public Use
  Company Number: US200601004779

PATIENT
  Age: 78 Year
  Sex: Female

DRUGS (2)
  1. HUMULIN 70/30 [Suspect]
     Indication: DIABETES MELLITUS NON-INSULIN-DEPENDENT
     Dates: start: 19860101
  2. HUMULIN R [Suspect]
     Indication: BLOOD GLUCOSE INCREASED

REACTIONS (2)
  - BLOOD GLUCOSE INCREASED [None]
  - FEMUR FRACTURE [None]
